FAERS Safety Report 26081913 (Version 1)
Quarter: 2025Q4

REPORT INFORMATION
  Report Type: Spontaneous
  Country: EU (occurrence: EU)
  Receive Date: 20251124
  Receipt Date: 20251124
  Transmission Date: 20260117
  Serious: Yes (Other)
  Sender: NOVARTIS
  Company Number: None

PATIENT
  Age: 34 Year
  Sex: Male

DRUGS (10)
  1. CYCLOSPORINE [Suspect]
     Active Substance: CYCLOSPORINE
     Indication: Chronic spontaneous urticaria
     Dosage: UNK (3 MG/KG/DIA)
     Route: 048
     Dates: start: 20241015, end: 20250515
  2. HALOPERIDOL DECANOATE [Concomitant]
     Active Substance: HALOPERIDOL DECANOATE
     Indication: Product used for unknown indication
     Dosage: 100 MG, BIW (SOLU??O INJET?VEL  )
     Route: 065
  3. QUETIAPINE [Concomitant]
     Active Substance: QUETIAPINE
     Indication: Product used for unknown indication
     Dosage: UNK, Q12H (300MG 0+1+0+1.5)
     Route: 065
  4. QUETIAPINE [Concomitant]
     Active Substance: QUETIAPINE
     Indication: Product used for unknown indication
     Dosage: 150 MG, Q12H (QUETIAPINA LP 150MG 1+0+)
     Route: 065
  5. GABAPENTIN [Concomitant]
     Active Substance: GABAPENTIN
     Indication: Product used for unknown indication
     Dosage: 300 MG, Q12H (GABAPENTINA 300MG 1+0+1)
     Route: 065
  6. OLANZAPINE [Concomitant]
     Active Substance: OLANZAPINE
     Indication: Product used for unknown indication
     Dosage: 5 MG, Q12H (OLANZAPINA 5MG 1+0+0+1)
     Route: 065
  7. ZOTEPINE [Concomitant]
     Active Substance: ZOTEPINE
     Indication: Product used for unknown indication
     Dosage: 25 MG, Q12H (ZOTEPINA 25MG 1+0+0+1)
     Route: 065
  8. LORAZEPAM [Concomitant]
     Active Substance: LORAZEPAM
     Indication: Product used for unknown indication
     Dosage: 2.5 MG, Q12H (LORAZEPAM 2,5MG 1+0+0+1)
     Route: 065
  9. DIAZEPAM [Concomitant]
     Active Substance: DIAZEPAM
     Indication: Product used for unknown indication
     Dosage: 10 MG, Q12H (DIAZEPAM 10MG 1+0+0+1)
     Route: 065
  10. BIPERIDEN [Concomitant]
     Active Substance: BIPERIDEN
     Indication: Musculoskeletal stiffness
     Dosage: UNK (AQUANDO DA ADMINISTRACAO DE ALD) - NAS TOMAS TINHA RIGIDEZ MUSCULAR MUITO ACENTUADA
     Route: 030

REACTIONS (4)
  - Abdominal pain upper [Recovered/Resolved]
  - Feeling hot [Recovered/Resolved]
  - Urticaria [Recovered/Resolved]
  - Nausea [Recovered/Resolved]

NARRATIVE: CASE EVENT DATE: 20250515
